FAERS Safety Report 13912746 (Version 1)
Quarter: 2017Q3

REPORT INFORMATION
  Report Type: Spontaneous
  Country: US (occurrence: US)
  Receive Date: 20170828
  Receipt Date: 20170828
  Transmission Date: 20171127
  Serious: No
  Sender: FDA-Public Use
  Company Number: US-TOLMAR, INC.-2016US012413

PATIENT
  Age: 78 Year
  Sex: Male

DRUGS (1)
  1. ELIGARD [Suspect]
     Active Substance: LEUPROLIDE ACETATE
     Indication: PROSTATE CANCER
     Dosage: 22.5 MG, Q3 MONTHS
     Route: 058

REACTIONS (3)
  - Wrong technique in product usage process [Unknown]
  - Product reconstitution quality issue [Unknown]
  - Product quality issue [Unknown]

NARRATIVE: CASE EVENT DATE: 20161118
